FAERS Safety Report 9010155 (Version 1)
Quarter: 2013Q1

REPORT INFORMATION
  Report Type: Other
  Country: IT (occurrence: IT)
  Receive Date: 20130111
  Receipt Date: 20130111
  Transmission Date: 20140127
  Serious: Yes (Hospitalization)
  Sender: FDA-Public Use
  Company Number: IT-WATSON-2012-23450

PATIENT
  Age: 70 Year
  Sex: Female

DRUGS (7)
  1. LOSARTAN POTASSIUM (UNKNOWN) [Suspect]
     Indication: HYPERTENSION
     Dosage: 25 MG, DAILY
     Route: 048
     Dates: start: 20000101, end: 20121127
  2. FUROSEMIDE (UNKNOWN) [Suspect]
     Indication: HYPERTENSION
     Dosage: 25 MG, DAILY
     Route: 048
     Dates: start: 20000101, end: 20121127
  3. SPIRONOLACTONE (UNKNOWN) [Suspect]
     Indication: HYPERTENSION
     Dosage: 100 MG, DAILY
     Route: 048
     Dates: start: 20000101, end: 20121127
  4. CARDIOASPIRIN [Concomitant]
     Indication: PRODUCT USED FOR UNKNOWN INDICATION
     Dosage: UNK, UNKNOWN
  5. ALLOPURINOL [Concomitant]
     Indication: GOUTY ARTHRITIS
     Dosage: UNK, UNKNOWN
     Route: 065
  6. SIMVASTATIN [Concomitant]
     Indication: DYSLIPIDAEMIA
     Dosage: UNK, UNKNOWN
     Route: 065
  7. PREGABALIN [Concomitant]
     Indication: NEURALGIA
     Dosage: UNK, UNKNOWN
     Route: 065

REACTIONS (3)
  - Bradycardia [Recovered/Resolved]
  - Electrolyte imbalance [Recovered/Resolved]
  - Presyncope [Recovered/Resolved]
